FAERS Safety Report 26101137 (Version 2)
Quarter: 2025Q4

REPORT INFORMATION
  Report Type: Spontaneous
  Country: US (occurrence: None)
  Receive Date: 20251128
  Receipt Date: 20251230
  Transmission Date: 20260117
  Serious: No
  Sender: APOTEX
  Company Number: US-APOTEX-2025AP033035

PATIENT
  Age: 36 Year
  Sex: Female

DRUGS (10)
  1. GENGRAF [Suspect]
     Active Substance: CYCLOSPORINE
     Indication: Still^s disease
     Dosage: 150 MILLIGRAM, BID (6 MILLIGRAM/KILOGRAM, QD)
     Route: 065
     Dates: start: 20230316, end: 202303
  2. GENGRAF [Suspect]
     Active Substance: CYCLOSPORINE
     Indication: Aplasia pure red cell
     Dosage: 75 MILLIGRAM, BID (3-4 MILLIGRAM/KILOGRAM, QD)
     Route: 065
     Dates: start: 20230320, end: 202309
  3. GENGRAF [Suspect]
     Active Substance: CYCLOSPORINE
     Dosage: UNK (TAPER OFF BY 25 MG PER WEEK)
     Route: 065
  4. PREDNISONE [Concomitant]
     Active Substance: PREDNISONE
     Indication: Still^s disease
     Dosage: UNK
     Route: 065
  5. PREDNISONE [Concomitant]
     Active Substance: PREDNISONE
     Indication: Aplasia pure red cell
     Dosage: 10 MILLIGRAM, BID
     Route: 065
  6. PREDNISONE [Concomitant]
     Active Substance: PREDNISONE
     Dosage: 20 MILLIGRAM, QD
     Route: 065
  7. PREDNISONE [Concomitant]
     Active Substance: PREDNISONE
     Dosage: 60 MILLIGRAM, QD FOLLWOED BY TAPER
     Route: 065
  8. PREDNISONE [Concomitant]
     Active Substance: PREDNISONE
     Dosage: 60 MILLIGRAM, QD
     Route: 065
  9. CANAKINUMAB [Concomitant]
     Active Substance: CANAKINUMAB
     Indication: Still^s disease
     Dosage: 150 MILLIGRAM, SINGLE
  10. CANAKINUMAB [Concomitant]
     Active Substance: CANAKINUMAB
     Indication: Aplasia pure red cell

REACTIONS (2)
  - Abdominal pain [Recovered/Resolved]
  - Pyrexia [Recovered/Resolved]

NARRATIVE: CASE EVENT DATE: 20230301
